FAERS Safety Report 20754999 (Version 2)
Quarter: 2022Q3

REPORT INFORMATION
  Report Type: Report from Study
  Country: US (occurrence: US)
  Receive Date: 20220427
  Receipt Date: 20220917
  Transmission Date: 20221026
  Serious: Yes (Other)
  Sender: FDA-Public Use
  Company Number: US-TAKEDA-2022TUS027753

PATIENT
  Sex: Female

DRUGS (1)
  1. HUMAN IMMUNOGLOBULIN G [Suspect]
     Active Substance: HUMAN IMMUNOGLOBULIN G
     Indication: Product used for unknown indication
     Dosage: 7 GRAM, 1/WEEK
     Route: 058

REACTIONS (4)
  - Asthma [Recovered/Resolved]
  - Sinusitis [Recovered/Resolved]
  - Injection site bruising [Unknown]
  - Injection site swelling [Unknown]
